FAERS Safety Report 5639289-X (Version None)
Quarter: 2008Q1

REPORT INFORMATION
  Report Type: 
  Country: None (occurrence: None)
  Receive Date: 20080226
  Receipt Date: 20080218
  Transmission Date: 20080703
  Serious: Yes (Hospitalization)
  Sender: FDA-Public Use
  Company Number: US-ELI_LILLY_AND_COMPANY-US200709002954

PATIENT
  Sex: Male
  Weight: 115.19 kg

DRUGS (6)
  1. BYETTA [Suspect]
     Dosage: 5 UG, 2/D
     Route: 058
     Dates: start: 20070912, end: 20071001
  2. BYETTA [Suspect]
     Dosage: 5 UG, DAILY (1/D)
     Route: 058
     Dates: start: 20071001
  3. GLYBURIDE [Concomitant]
     Dosage: UNK, 2/D
  4. PLAVIX [Concomitant]
     Dosage: 75 MG, DAILY (1/D)
     Route: 048
  5. ASPIRIN [Concomitant]
     Dosage: 81 MG, DAILY (1/D)
     Route: 048
  6. ENALAPRIL MALEATE [Concomitant]
     Indication: BLOOD PRESSURE INCREASED

REACTIONS (3)
  - ADVERSE DRUG REACTION [None]
  - THROMBOSIS [None]
  - WEIGHT DECREASED [None]
